FAERS Safety Report 6568485-2 (Version None)
Quarter: 2010Q1

REPORT INFORMATION
  Report Type: 
  Country: None (occurrence: None)
  Receive Date: 20100203
  Receipt Date: 20100128
  Transmission Date: 20100710
  Serious: Yes (Hospitalization)
  Sender: FDA-Public Use
  Company Number: B0629009A

PATIENT
  Sex: Male

DRUGS (11)
  1. VALTREX [Suspect]
     Indication: HERPES ZOSTER
     Dosage: 500MG THREE TIMES PER DAY
     Route: 048
     Dates: start: 20100116, end: 20100119
  2. BLOPRESS [Concomitant]
     Indication: HYPERTENSION
     Dosage: 8MG PER DAY
     Route: 048
  3. NORVASC [Concomitant]
     Indication: HYPERTENSION
     Dosage: 10MG PER DAY
     Route: 048
  4. RENIVACE [Concomitant]
     Indication: HYPERTENSION
     Dosage: 5MG PER DAY
     Route: 048
  5. ARTIST [Concomitant]
     Indication: HYPERTENSION
     Dosage: 20MG PER DAY
     Route: 048
  6. ZYLORIC [Concomitant]
     Indication: HYPERTENSION
     Dosage: 100MG PER DAY
     Route: 048
  7. HALCION [Concomitant]
     Indication: INSOMNIA
     Dosage: .25MG PER DAY
     Route: 048
  8. FUROSEMIDE [Concomitant]
     Dosage: 240MG PER DAY
     Route: 048
  9. CALTAN [Concomitant]
     Indication: MINERAL METABOLISM DISORDER
     Dosage: 3000MG PER DAY
     Route: 048
  10. RENAGEL [Concomitant]
     Indication: METABOLIC DISORDER
     Dosage: 2250MG PER DAY
     Route: 048
  11. METHYCOBAL [Concomitant]
     Indication: NEUROPATHY PERIPHERAL
     Dosage: 1.5MCG PER DAY
     Route: 048

REACTIONS (5)
  - AGITATION [None]
  - DISCOMFORT [None]
  - DYSARTHRIA [None]
  - ENCEPHALOPATHY [None]
  - PSYCHIATRIC SYMPTOM [None]
